FAERS Safety Report 8103497-9 (Version None)
Quarter: 2012Q1

REPORT INFORMATION
  Report Type: 
  Country: None (occurrence: None)
  Receive Date: 20120201
  Receipt Date: 20120128
  Transmission Date: 20120608
  Serious: Yes (Other)
  Sender: FDA-Public Use
  Company Number: PHHY2011CA103205

PATIENT
  Sex: Male

DRUGS (6)
  1. CRESTOR [Concomitant]
  2. LORAZEPAM [Concomitant]
  3. ZOLEDRONOC ACID [Suspect]
     Indication: OSTEOPOROSIS
     Dosage: 5 MG
     Route: 042
     Dates: start: 20090108
  4. VITAMIN D [Concomitant]
  5. ANDRIOL [Concomitant]
  6. CALCIUM [Concomitant]

REACTIONS (9)
  - DRY MOUTH [None]
  - HEAD DISCOMFORT [None]
  - LETHARGY [None]
  - MUSCULAR WEAKNESS [None]
  - LOSS OF CONSCIOUSNESS [None]
  - DIARRHOEA [None]
  - EYE PAIN [None]
  - PAIN [None]
  - PYREXIA [None]
